FAERS Safety Report 6962546-1 (Version None)
Quarter: 2010Q3

REPORT INFORMATION
  Report Type: 
  Country: None (occurrence: None)
  Receive Date: 20100902
  Receipt Date: 20100823
  Transmission Date: 20110219
  Serious: Yes (Hospitalization, Other)
  Sender: FDA-Public Use
  Company Number: JP-SANOFI-AVENTIS-2010SA047343

PATIENT
  Age: 86 Year
  Sex: Female

DRUGS (10)
  1. LASIX [Suspect]
     Indication: CARDIAC FAILURE CHRONIC
     Dosage: TUBAL ADMINISTRATION FOR INTERNAL USE
     Route: 048
     Dates: start: 20100613, end: 20100624
  2. LASIX [Suspect]
     Dosage: TUBAL ADMINISTRATION FOR INTERNAL USE
     Route: 048
     Dates: start: 20100702, end: 20100710
  3. LASIX [Suspect]
     Indication: CARDIAC FAILURE CHRONIC
     Dosage: ONE-HALF AMPULE TWICE DAILY
     Route: 042
     Dates: start: 20100625, end: 20100625
  4. LASIX [Suspect]
     Dosage: ONE-HALF AMPULE THREE TIMES DAILY
     Route: 042
     Dates: start: 20100626
  5. LASIX [Suspect]
     Dosage: ONE-HALF AMPULE TWICE DAILY
     Route: 042
     Dates: end: 20100701
  6. LOXONIN [Suspect]
     Dosage: TUBAL ADMINISTRATION
     Route: 048
     Dates: start: 20100417, end: 20100628
  7. TAKEPRON [Concomitant]
     Dosage: TUBAL ADMINISTRATION
     Route: 048
     Dates: end: 20100628
  8. TAKEPRON [Concomitant]
     Dosage: TUBAL ADMINISTRATION
     Route: 048
     Dates: start: 20100702
  9. TICLOPIDINE HCL [Concomitant]
     Dosage: TUBAL ADMINISTRATION
     Route: 048
     Dates: end: 20100628
  10. TICLOPIDINE HCL [Concomitant]
     Dosage: TUBAL ADMINISTRATION
     Route: 048
     Dates: start: 20100702

REACTIONS (2)
  - DYSPNOEA [None]
  - INTERSTITIAL LUNG DISEASE [None]
